FAERS Safety Report 8281258-8 (Version None)
Quarter: 2012Q2

REPORT INFORMATION
  Report Type: 
  Country: None (occurrence: None)
  Receive Date: 20120413
  Receipt Date: 20120330
  Transmission Date: 20120825
  Serious: Yes (Hospitalization)
  Sender: FDA-Public Use
  Company Number: FR-AMGEN-FRASP2012021664

PATIENT
  Age: 65 Year
  Sex: Male

DRUGS (4)
  1. ACETAMINOPHEN [Concomitant]
     Dosage: UNK; 3X/DAY
     Route: 048
     Dates: start: 19990101
  2. ENBREL [Suspect]
     Indication: PSORIATIC ARTHROPATHY
     Dosage: 1 DF, WEEKLY
     Route: 058
     Dates: start: 20060101, end: 20110101
  3. TRAMADOL HCL [Concomitant]
     Dosage: UNK; 2X/DAY
     Route: 048
     Dates: start: 19990101
  4. PANTOPRAZOLE SODIUM [Concomitant]
     Dosage: 20 MG; 1X/DAY
     Route: 048

REACTIONS (1)
  - COLORECTAL CANCER [None]
